FAERS Safety Report 4866848-4 (Version None)
Quarter: 2005Q4

REPORT INFORMATION
  Report Type: 
  Country: None (occurrence: None)
  Receive Date: 20051222
  Receipt Date: 20051212
  Transmission Date: 20060501
  Serious: Yes (Hospitalization)
  Sender: FDA-Public Use
  Company Number: GXKR2005NL02135

PATIENT
  Age: 73 Year
  Sex: Female
  Weight: 82 kg

DRUGS (6)
  1. NIFEDIPINE [Suspect]
     Indication: HYPERTENSION
     Dosage: 60 MG, QD
  2. ATENOLOL [Suspect]
     Indication: HYPERTENSION
     Dosage: 100 MG, QD
  3. AMLODIPINE [Suspect]
     Dosage: 10 MG, QD
  4. AMILORIDE+HYDROCHLOROTHIAZIDE (NGX)(AMILORIDE, HYDROCHLOROTHIAZIDE) UN [Suspect]
     Dosage: 50 MG/5 MG, QD
  5. SIMVASTATIN [Concomitant]
  6. LEVOTHYROXINE SODIUM [Concomitant]

REACTIONS (7)
  - CELLULITIS [None]
  - DIZZINESS [None]
  - HYPONATRAEMIA [None]
  - HYPOVOLAEMIA [None]
  - LOSS OF CONSCIOUSNESS [None]
  - ORTHOSTATIC HYPOTENSION [None]
  - PITTING OEDEMA [None]
